FAERS Safety Report 4643492-5 (Version None)
Quarter: 2005Q2

REPORT INFORMATION
  Report Type: 
  Country: None (occurrence: None)
  Receive Date: 20050328
  Receipt Date: 20041013
  Transmission Date: 20051028
  Serious: Yes (Other)
  Sender: FDA-Public Use
  Company Number: PHEH2004US11039

PATIENT
  Age: 40 Year
  Sex: Female

DRUGS (1)
  1. VIVELLE-DOT [Suspect]
     Indication: ARTIFICIAL MENOPAUSE
     Dosage: 01.MG/TWICE WEEKLY
     Dates: start: 20040901

REACTIONS (5)
  - BLOOD PRESSURE INCREASED [None]
  - CRYING [None]
  - HEADACHE [None]
  - MIGRAINE [None]
  - NERVOUSNESS [None]
